FAERS Safety Report 6346315-1 (Version None)
Quarter: 2009Q3

REPORT INFORMATION
  Report Type: 
  Country: None (occurrence: None)
  Receive Date: 20090909
  Receipt Date: 20090825
  Transmission Date: 20100115
  Serious: Yes (Other)
  Sender: FDA-Public Use
  Company Number: GB-PFIZER INC-2009262043

PATIENT

DRUGS (3)
  1. TOLTERODINE TARTRATE [Suspect]
     Indication: POLLAKIURIA
     Dosage: UNK
  2. TOLTERODINE TARTRATE [Suspect]
     Indication: MICTURITION URGENCY
  3. TOLTERODINE TARTRATE [Suspect]
     Indication: INCONTINENCE

REACTIONS (3)
  - ABORTION SPONTANEOUS [None]
  - DRUG EXPOSURE DURING PREGNANCY [None]
  - PREGNANCY [None]
